FAERS Safety Report 8070482-5 (Version None)
Quarter: 2011Q4

REPORT INFORMATION
  Report Type: 
  Country: None (occurrence: None)
  Receive Date: 20111221
  Receipt Date: 20110810
  Transmission Date: 20120403
  Serious: Yes (Other)
  Sender: FDA-Public Use
  Company Number: PHEH2011US01346

PATIENT
  Age: 42 Year
  Sex: Male

DRUGS (2)
  1. EXJADE [Suspect]
     Dosage: 20 MG/KG/DAY, ORAL, 6 DF, DAILY, ORAL, 3 DF, DAILY, ORAL
     Route: 048
     Dates: start: 20101201, end: 20110511
  2. EXJADE [Suspect]
     Dosage: 20 MG/KG/DAY, ORAL, 6 DF, DAILY, ORAL, 3 DF, DAILY, ORAL
     Route: 048
     Dates: start: 20060601, end: 20101201

REACTIONS (10)
  - CERUMEN IMPACTION [None]
  - ALANINE AMINOTRANSFERASE INCREASED [None]
  - ASPARTATE AMINOTRANSFERASE INCREASED [None]
  - BLOOD ALKALINE PHOSPHATASE INCREASED [None]
  - SALIVARY GLAND PAIN [None]
  - HEPATITIS [None]
  - HEPATIC ENZYME INCREASED [None]
  - EAR PAIN [None]
  - PAIN [None]
  - HYPOACUSIS [None]
